FAERS Safety Report 8237792-X (Version None)
Quarter: 2012Q1

REPORT INFORMATION
  Report Type: 
  Country: None (occurrence: None)
  Receive Date: 20120327
  Receipt Date: 20120323
  Transmission Date: 20120608
  Serious: No
  Sender: FDA-Public Use
  Company Number: US-PFIZER INC-2012076100

PATIENT
  Age: 4 Year
  Sex: Male

DRUGS (1)
  1. CHILDREN'S ADVIL [Suspect]
     Indication: PYREXIA
     Dosage: ONE AND A HALF TEASPOON

REACTIONS (2)
  - HYPERHIDROSIS [None]
  - MIDDLE INSOMNIA [None]
